FAERS Safety Report 4353694-3 (Version None)
Quarter: 2004Q2

REPORT INFORMATION
  Report Type: 
  Country: None (occurrence: None)
  Receive Date: 20040505
  Receipt Date: 20040422
  Transmission Date: 20050107
  Serious: Yes (Other)
  Sender: FDA-Public Use
  Company Number: PHBS2004TR05455

PATIENT
  Sex: Female

DRUGS (1)
  1. ZELMAC [Suspect]

REACTIONS (1)
  - ANAEMIA MEGALOBLASTIC [None]
